FAERS Safety Report 6749124-4 (Version None)
Quarter: 2010Q2

REPORT INFORMATION
  Report Type: 
  Country: None (occurrence: None)
  Receive Date: 20100601
  Receipt Date: 20100524
  Transmission Date: 20101027
  Serious: Yes (Hospitalization, Other)
  Sender: FDA-Public Use
  Company Number: JP-BRISTOL-MYERS SQUIBB COMPANY-15125164

PATIENT
  Age: 46 Year
  Sex: Female
  Weight: 42 kg

DRUGS (9)
  1. SPRYCEL [Suspect]
     Indication: ACUTE LYMPHOCYTIC LEUKAEMIA
     Route: 048
     Dates: start: 20090319
  2. ENDOXAN INJ [Suspect]
     Indication: ACUTE LYMPHOCYTIC LEUKAEMIA
     Dosage: HAD ALSO RECEIVED ON 27APR09 AND 27AUG09.
     Route: 042
     Dates: start: 20091002, end: 20100203
  3. NOVANTRONE [Suspect]
     Indication: ACUTE LYMPHOCYTIC LEUKAEMIA
     Dosage: FORM: INJ; INITIALLY RECEIVED ON 27APR09(9MG) AND 27AUG09 (10MG)
     Route: 042
     Dates: start: 20091002, end: 20100203
  4. ONCOVIN [Suspect]
     Indication: ACUTE LYMPHOCYTIC LEUKAEMIA
     Dosage: FORM: INJ; HAD ALSO RECEIVED ON 27APR09 AND 27AUG09.
     Route: 042
     Dates: start: 20091002, end: 20100203
  5. PREDONINE [Suspect]
     Indication: ACUTE LYMPHOCYTIC LEUKAEMIA
     Dosage: FORM: TAB; HAD ALSO RECEIVED 60MG/DAY 27APR09-01MAY09 AND 90MG FROM 27AUG09-UNK.
     Route: 048
     Dates: start: 20091002, end: 20100219
  6. METHOTREXATE [Suspect]
     Indication: ACUTE LYMPHOCYTIC LEUKAEMIA
     Dosage: FORM: INJ;ALSO ON 22APR09 AND 20MAY09.
     Route: 037
     Dates: start: 20091001, end: 20100311
  7. CYLOCIDE [Suspect]
     Indication: ACUTE LYMPHOCYTIC LEUKAEMIA
     Dosage: FORM: INJ
     Route: 037
     Dates: start: 20100208, end: 20100311
  8. PREDNISOLONE SODIUM SUCCINATE INJ [Suspect]
     Indication: ACUTE LYMPHOCYTIC LEUKAEMIA
     Dosage: FORM: INJ;ALSO ON 22APR09,20MAY09 AND 17AUG09-18AUG09.
     Route: 037
     Dates: start: 20091001, end: 20100311
  9. NEUTROGIN [Concomitant]
     Dosage: FORM: INJ;ALSO ON 05MAY09-10MAY09 AND 04SEP09-10SEP09
     Route: 058
     Dates: start: 20091009, end: 20100301

REACTIONS (2)
  - GASTROINTESTINAL HAEMORRHAGE [None]
  - PSEUDOMEMBRANOUS COLITIS [None]
